FAERS Safety Report 24118141 (Version 1)
Quarter: 2024Q3

REPORT INFORMATION
  Report Type: Spontaneous
  Country: CO (occurrence: CO)
  Receive Date: 20240722
  Receipt Date: 20240722
  Transmission Date: 20241016
  Serious: Yes (Death, Life-Threatening, Hospitalization)
  Sender: AUROBINDO
  Company Number: CO-MLMSERVICE-20240711-PI124403-00104-3

PATIENT
  Age: 28 Year
  Sex: Female

DRUGS (26)
  1. AZITHROMYCIN [Suspect]
     Active Substance: AZITHROMYCIN
     Indication: Febrile bone marrow aplasia
     Dosage: UNK
     Route: 065
  2. AVIBACTAM SODIUM\CEFTAZIDIME [Suspect]
     Active Substance: AVIBACTAM SODIUM\CEFTAZIDIME
     Indication: Staphylococcal bacteraemia
     Dosage: UNK
     Route: 065
  3. AVIBACTAM SODIUM\CEFTAZIDIME [Suspect]
     Active Substance: AVIBACTAM SODIUM\CEFTAZIDIME
     Indication: Stomatitis
  4. AVIBACTAM SODIUM\CEFTAZIDIME [Suspect]
     Active Substance: AVIBACTAM SODIUM\CEFTAZIDIME
     Indication: Escherichia bacteraemia
  5. AVIBACTAM SODIUM\CEFTAZIDIME [Suspect]
     Active Substance: AVIBACTAM SODIUM\CEFTAZIDIME
     Indication: Enterococcal bacteraemia
  6. AVIBACTAM SODIUM\CEFTAZIDIME [Suspect]
     Active Substance: AVIBACTAM SODIUM\CEFTAZIDIME
     Indication: Vulvovaginal inflammation
  7. DOXYCYCLINE [Suspect]
     Active Substance: DOXYCYCLINE\DOXYCYCLINE HYCLATE
     Indication: Bone marrow failure
     Dosage: UNK
     Route: 065
  8. MOXIFLOXACIN [Suspect]
     Active Substance: MOXIFLOXACIN
     Indication: Pulmonary tuberculosis
     Dosage: UNK
     Route: 065
  9. IVERMECTIN [Suspect]
     Active Substance: IVERMECTIN
     Indication: Bone marrow failure
     Dosage: UNK
     Route: 065
  10. AZTREONAM [Suspect]
     Active Substance: AZTREONAM
     Indication: Escherichia bacteraemia
     Dosage: UNK
     Route: 065
  11. AZTREONAM [Suspect]
     Active Substance: AZTREONAM
     Indication: Stomatitis
  12. AZTREONAM [Suspect]
     Active Substance: AZTREONAM
     Indication: Vulvovaginal inflammation
  13. AZTREONAM [Suspect]
     Active Substance: AZTREONAM
     Indication: Staphylococcal bacteraemia
  14. AZTREONAM [Suspect]
     Active Substance: AZTREONAM
     Indication: Enterococcal bacteraemia
  15. AMPHOTERICIN B [Suspect]
     Active Substance: AMPHOTERICIN B
     Indication: Fungal infection
     Dosage: UNK
     Route: 065
  16. CLINDAMYCIN [Suspect]
     Active Substance: CLINDAMYCIN
     Indication: Bone marrow failure
     Dosage: UNK
     Route: 065
  17. CEFTAROLINE FOSAMIL [Suspect]
     Active Substance: CEFTAROLINE FOSAMIL
     Indication: Vulvovaginal inflammation
     Dosage: UNK
     Route: 065
  18. CEFTAROLINE FOSAMIL [Suspect]
     Active Substance: CEFTAROLINE FOSAMIL
     Indication: Stomatitis
  19. CEFTAROLINE FOSAMIL [Suspect]
     Active Substance: CEFTAROLINE FOSAMIL
     Indication: Escherichia bacteraemia
  20. CEFTAROLINE FOSAMIL [Suspect]
     Active Substance: CEFTAROLINE FOSAMIL
     Indication: Enterococcal bacteraemia
  21. CEFTAROLINE FOSAMIL [Suspect]
     Active Substance: CEFTAROLINE FOSAMIL
     Indication: Staphylococcal bacteraemia
  22. AZATHIOPRINE [Concomitant]
     Active Substance: AZATHIOPRINE
     Indication: Autoimmune haemolytic anaemia
     Dosage: 50 MILLIGRAM, ONCE A DAY
     Route: 048
  23. CYCLOPHOSPHAMIDE [Concomitant]
     Active Substance: CYCLOPHOSPHAMIDE
     Indication: Autoimmune haemolytic anaemia
     Dosage: 3 DOSAGE FORM (THREE DOSES)
     Route: 065
  24. METHYLPREDNISOLONE [Concomitant]
     Active Substance: METHYLPREDNISOLONE
     Indication: Autoimmune haemolytic anaemia
     Dosage: HIGH-DOSE
     Route: 042
  25. PREDNISOLONE [Concomitant]
     Active Substance: PREDNISOLONE
     Indication: Autoimmune haemolytic anaemia
     Dosage: 25 MILLIGRAM, ONCE A DAY
     Route: 048
  26. RITUXIMAB [Concomitant]
     Active Substance: RITUXIMAB
     Indication: Autoimmune haemolytic anaemia
     Dosage: 4 DOSAGE FORM (FOUR DOSES)
     Route: 065

REACTIONS (1)
  - Treatment failure [Fatal]
